FAERS Safety Report 8906778 (Version 1)
Quarter: 2012Q4

REPORT INFORMATION
  Report Type: 
  Country: SE (occurrence: SE)
  Receive Date: 20121114
  Receipt Date: 20121114
  Transmission Date: 20130627
  Serious: Yes (Hospitalization)
  Sender: FDA-Public Use
  Company Number: SE-PFIZER INC-2012280116

PATIENT
  Age: 32 Year
  Sex: Female
  Weight: 90.5 kg

DRUGS (8)
  1. GENOTROPIN [Suspect]
     Indication: GROWTH HORMONE DEFICIENCY
     Dosage: 1.0 mg, 1x/day,7 injections/week
     Route: 058
     Dates: start: 20001211
  2. BRICANYL [Concomitant]
     Indication: ASTHMA
     Dosage: UNK
     Dates: start: 19900701
  3. PULMICORT [Concomitant]
     Indication: ASTHMA
     Dosage: UNK
     Dates: start: 19900701
  4. DESMOPRESSIN [Concomitant]
     Indication: ADH DECREASED
     Dosage: UNK
     Dates: start: 19910601
  5. TRISEKVENS [Concomitant]
     Indication: LUTEINIZING HORMONE DEFICIENCY
     Dosage: UNK
     Dates: start: 19971001
  6. TRISEKVENS [Concomitant]
     Indication: FOLLICLE-STIMULATING HORMONE DEFICIENCY
  7. CORTONE [Concomitant]
     Indication: HYPOTHYROIDISM
     Dosage: UNK
     Dates: start: 19910601
  8. LEVAXIN [Concomitant]
     Indication: HYPOTHYROIDISM
     Dosage: UNK
     Dates: start: 19910601

REACTIONS (2)
  - Volvulus [Unknown]
  - Food poisoning [Unknown]
